APPROVED DRUG PRODUCT: CILOSTAZOL
Active Ingredient: CILOSTAZOL
Strength: 50MG
Dosage Form/Route: TABLET;ORAL
Application: A077024 | Product #001
Applicant: HIKMA PHARMACEUTICALS USA INC
Approved: May 17, 2005 | RLD: No | RS: No | Type: DISCN